FAERS Safety Report 24238255 (Version 2)
Quarter: 2024Q3

REPORT INFORMATION
  Report Type: Spontaneous
  Country: JP (occurrence: JP)
  Receive Date: 20240822
  Receipt Date: 20240927
  Transmission Date: 20241016
  Serious: Yes (Other)
  Sender: PFIZER
  Company Number: JP-PFIZER INC-202400240578

PATIENT
  Age: 56 Year
  Sex: Male
  Weight: 85 kg

DRUGS (16)
  1. PAXLOVID [Suspect]
     Active Substance: NIRMATRELVIR\RITONAVIR
     Indication: COVID-19 treatment
     Dosage: [NIRMATRELVIR 300 MG]/[RITONAVIR 100 MG]; 2X/DAY;
     Route: 048
     Dates: start: 20240820, end: 20240825
  2. BENZBROMARONE [Concomitant]
     Active Substance: BENZBROMARONE
  3. OLMESARTAN [Concomitant]
     Active Substance: OLMESARTAN
  4. PITAVASTATIN [Concomitant]
     Active Substance: PITAVASTATIN
  5. PEMAFIBRATE [Concomitant]
     Active Substance: PEMAFIBRATE
  6. METFORMIN HYDROCHLORIDE\VILDAGLIPTIN [Concomitant]
     Active Substance: METFORMIN HYDROCHLORIDE\VILDAGLIPTIN
  7. METGLUCO [Concomitant]
     Active Substance: METFORMIN HYDROCHLORIDE
  8. DAPAGLIFLOZIN [Concomitant]
     Active Substance: DAPAGLIFLOZIN
  9. IMEGLIMIN HYDROCHLORIDE [Concomitant]
     Active Substance: IMEGLIMIN HYDROCHLORIDE
  10. DULOXETINE HYDROCHLORIDE [Concomitant]
     Active Substance: DULOXETINE HYDROCHLORIDE
  11. ETIZOLAM [Concomitant]
     Active Substance: ETIZOLAM
  12. BENIDIPINE HYDROCHLORIDE [Concomitant]
     Active Substance: BENIDIPINE HYDROCHLORIDE
  13. CARBOCYSTEINE [Concomitant]
     Active Substance: CARBOCYSTEINE
     Dosage: 1500 MG
  14. TRANEXAMIC ACID [Concomitant]
     Active Substance: TRANEXAMIC ACID
     Dosage: 750 MG
  15. FLUTICASONE PROPIONATE [Concomitant]
     Active Substance: FLUTICASONE PROPIONATE
     Dosage: 50 UG
  16. EPINASTINE HYDROCHLORIDE [Concomitant]
     Active Substance: EPINASTINE HYDROCHLORIDE
     Dosage: 20 MG

REACTIONS (1)
  - Hypothermia [Unknown]

NARRATIVE: CASE EVENT DATE: 20240821
